FAERS Safety Report 8372689-6 (Version None)
Quarter: 2012Q2

REPORT INFORMATION
  Report Type: 
  Country: None (occurrence: None)
  Receive Date: 20120521
  Receipt Date: 20120510
  Transmission Date: 20120825
  Serious: Yes (Hospitalization, Other)
  Sender: FDA-Public Use
  Company Number: JP-VERTEX PHARMACEUTICALS INC.-AE-2012-003273

PATIENT
  Age: 63 Year
  Sex: Male

DRUGS (10)
  1. PEG-INTRON [Concomitant]
     Indication: HEPATITIS C
     Route: 058
     Dates: start: 20120207
  2. SEDEKOPAN [Concomitant]
     Route: 048
     Dates: start: 20120309
  3. TELAVIC (TELAPREVIR) [Suspect]
     Indication: HEPATITIS C
     Route: 048
     Dates: start: 20120207, end: 20120307
  4. REBETOL [Concomitant]
     Route: 048
     Dates: start: 20120307, end: 20120309
  5. CONIEL [Concomitant]
     Route: 048
  6. REBETOL [Concomitant]
     Route: 048
  7. REBETOL [Concomitant]
     Indication: HEPATITIS C
     Route: 048
     Dates: start: 20120207, end: 20120306
  8. REBETOL [Concomitant]
     Route: 048
     Dates: start: 20120310
  9. REBETOL [Concomitant]
     Route: 048
  10. TELAVIC (TELAPREVIR) [Suspect]
     Route: 048
     Dates: start: 20120308

REACTIONS (4)
  - DECREASED APPETITE [None]
  - SYNCOPE [None]
  - RENAL DISORDER [None]
  - ANAEMIA [None]
